FAERS Safety Report 9617501 (Version 1)
Quarter: 2013Q4

REPORT INFORMATION
  Report Type: Spontaneous
  Country: US (occurrence: US)
  Receive Date: 20131011
  Receipt Date: 20131011
  Transmission Date: 20140711
  Serious: Yes (Hospitalization)
  Sender: FDA-Public Use
  Company Number: US-GLAXOSMITHKLINE-A1044974A

PATIENT
  Age: 84 Year
  Sex: Female

DRUGS (13)
  1. ADVAIR [Suspect]
     Indication: CHRONIC OBSTRUCTIVE PULMONARY DISEASE
     Dosage: 2PUFF TWICE PER DAY
     Route: 055
     Dates: start: 2011
  2. COMBIVENT [Concomitant]
  3. AZITHROMYCIN [Concomitant]
  4. OXYBUTYNIN [Concomitant]
  5. LOSARTAN [Concomitant]
  6. MULTIVITAMIN [Concomitant]
  7. CRANBERRY [Concomitant]
  8. CALCIUM [Concomitant]
  9. VITAMIN D3 [Concomitant]
  10. FISH OIL [Concomitant]
  11. NYSTATIN [Concomitant]
  12. ZOLPIDEM [Concomitant]
  13. DALIRESP [Concomitant]

REACTIONS (4)
  - Pneumonia [Recovered/Resolved]
  - Oral candidiasis [Not Recovered/Not Resolved]
  - Fall [Recovered/Resolved]
  - Off label use [Not Recovered/Not Resolved]
